FAERS Safety Report 17905507 (Version 1)
Quarter: 2020Q2

REPORT INFORMATION
  Report Type: Spontaneous
  Country: US (occurrence: US)
  Receive Date: 20200616
  Receipt Date: 20200616
  Transmission Date: 20200714
  Serious: Yes (Hospitalization)
  Sender: FDA-Public Use
  Company Number: None

PATIENT
  Age: 58 Year
  Sex: Male
  Weight: 74.84 kg

DRUGS (2)
  1. CAPECITABINE. [Suspect]
     Active Substance: CAPECITABINE
     Indication: NEOPLASM MALIGNANT
     Route: 048
     Dates: start: 20200518, end: 20200601
  2. CAPECITABINE. [Concomitant]
     Active Substance: CAPECITABINE
     Dates: start: 20200518

REACTIONS (2)
  - Respiratory distress [None]
  - Rectal haemorrhage [None]

NARRATIVE: CASE EVENT DATE: 20200601
